FAERS Safety Report 7913772-6 (Version None)
Quarter: 2011Q4

REPORT INFORMATION
  Report Type: 
  Country: None (occurrence: None)
  Receive Date: 20111115
  Receipt Date: 20111108
  Transmission Date: 20120403
  Serious: Yes (Death)
  Sender: FDA-Public Use
  Company Number: US-JNJFOC-20111105282

PATIENT
  Sex: Female

DRUGS (6)
  1. DOXORUBICIN HCL [Suspect]
     Indication: OVARIAN CANCER
     Route: 042
  2. TEMSIROLIMUS [Suspect]
     Route: 042
  3. BEVACIZUMAB [Suspect]
     Indication: OVARIAN CANCER
     Route: 042
  4. DOXORUBICIN HCL [Suspect]
     Route: 042
  5. TEMSIROLIMUS [Suspect]
     Indication: OVARIAN CANCER
     Route: 042
  6. BEVACIZUMAB [Suspect]
     Route: 042

REACTIONS (1)
  - LARGE INTESTINE PERFORATION [None]
